FAERS Safety Report 15333964 (Version 1)
Quarter: 2018Q3

REPORT INFORMATION
  Report Type: Spontaneous
  Country: US (occurrence: US)
  Receive Date: 20180826
  Receipt Date: 20180826
  Transmission Date: 20181010
  Serious: Yes (Other)
  Sender: FDA-Public Use
  Company Number: None

PATIENT
  Age: 30 Year
  Sex: Female
  Weight: 104 kg

DRUGS (6)
  1. CITRANATAL ASSURE [Suspect]
     Active Substance: .ALPHA.-TOCOPHEROL\ASCORBIC ACID\CALCIUM CITRATE\CHOLECALCIFEROL\COPPER\DOCONEXENT\DOCUSATE SODIUM\FOLIC ACID\ICOSAPENT\IODINE\IRON\NIACINAMIDE\PYRIDOXINE HYDROCHLORIDE\RIBOFLAVIN\THIAMINE\ZINC
     Indication: PRENATAL CARE
     Dosage: ?          QUANTITY:2 1 CAPSULE, 1 TABLE;?
     Route: 048
     Dates: start: 20180824, end: 20180824
  2. PROGESTERONE. [Concomitant]
     Active Substance: PROGESTERONE
  3. KROGER ALLERGY RELIEF [Concomitant]
     Active Substance: CHLOPHEDIANOL HYDROCHLORIDE\PYRILAMINE MALEATE
  4. METFORMIN [Concomitant]
     Active Substance: METFORMIN HYDROCHLORIDE
  5. WOMEN^S ONE A DAY MULTIVITAMIN [Concomitant]
  6. BENADRYL [Concomitant]
     Active Substance: DIPHENHYDRAMINE HYDROCHLORIDE

REACTIONS (11)
  - Swelling [None]
  - Contusion [None]
  - Drug hypersensitivity [None]
  - Gait disturbance [None]
  - Urticaria [None]
  - Joint swelling [None]
  - Maternal exposure during pregnancy [None]
  - Pruritus [None]
  - Lip swelling [None]
  - Arthralgia [None]
  - Ear swelling [None]

NARRATIVE: CASE EVENT DATE: 20180824
